FAERS Safety Report 9410705 (Version 1)
Quarter: 2013Q2

REPORT INFORMATION
  Report Type: Spontaneous
  Country: US (occurrence: None)
  Receive Date: 20130417
  Receipt Date: 20130417
  Transmission Date: 20140414
  Serious: Yes (Other)
  Sender: FDA-Public Use
  Company Number: VAL_02289_2013

PATIENT
  Sex: Female

DRUGS (10)
  1. METOPROLOL [Suspect]
     Indication: BLOOD PRESSURE ABNORMAL
  2. DIOVAN HCT [Suspect]
     Indication: BLOOD PRESSURE ABNORMAL
  3. CLOPIDOGREL [Suspect]
     Indication: ANTICOAGULANT THERAPY
  4. GABAPENTIN [Suspect]
     Indication: NEURALGIA
     Dosage: 1800 MG DAILY (REGIMEN #2
  5. MULTAQ [Suspect]
     Indication: ARRHYTHMIA
     Dosage: 400 MG QD (REGIMEN #2)
  6. PLAVIX [Suspect]
     Indication: ANTICOAGULANT THERAPY
  7. BENADRYL [Suspect]
     Indication: SLEEP DISORDER
     Dosage: DF REGIMEN #1
  8. FOLBIC [Concomitant]
  9. CRESTOR [Concomitant]
  10. ASPIRIN [Concomitant]

REACTIONS (4)
  - Drug effect decreased [None]
  - Asthenia [None]
  - Dyspnoea [None]
  - Contusion [None]
